FAERS Safety Report 7931007-5 (Version None)
Quarter: 2011Q4

REPORT INFORMATION
  Report Type: 
  Country: None (occurrence: None)
  Receive Date: 20111118
  Receipt Date: 20111118
  Transmission Date: 20120403
  Serious: Yes (Hospitalization)
  Sender: FDA-Public Use
  Company Number: None

PATIENT
  Age: 58 Year
  Sex: Male
  Weight: 92.3 kg

DRUGS (2)
  1. CARFILZOMIB [Suspect]
     Indication: MANTLE CELL LYMPHOMA
     Dosage: CARFILZOMIB 20MG/M2 DAYS, 1, 2,8,9, 15, 16 IV 20 MG/M2
     Route: 042
     Dates: start: 20110913, end: 20111028
  2. VORINOSTAT [Suspect]
     Dosage: 200MG/DAY 100MG BID ON DAYS 1, 2, 3, 8, 9, 10, 15, 16, 17 PO
     Route: 048

REACTIONS (1)
  - DYSPNOEA [None]
